FAERS Safety Report 10874439 (Version 1)
Quarter: 2015Q1

REPORT INFORMATION
  Report Type: Spontaneous
  Country: IN (occurrence: None)
  Receive Date: 20150224
  Receipt Date: 20150224
  Transmission Date: 20150721
  Serious: Yes (Other)
  Sender: FDA-Public Use
  Company Number: 2015COR00040

PATIENT

DRUGS (1)
  1. PHENYTOIN (PHENYTOIN) [Suspect]
     Active Substance: PHENYTOIN

REACTIONS (2)
  - Toxicity to various agents [None]
  - Opsoclonus myoclonus [None]
